FAERS Safety Report 6285354-6 (Version None)
Quarter: 2009Q3

REPORT INFORMATION
  Report Type: 
  Country: None (occurrence: None)
  Receive Date: 20090723
  Receipt Date: 20090713
  Transmission Date: 20100115
  Serious: Yes (Death)
  Sender: FDA-Public Use
  Company Number: 090709-0000788

PATIENT
  Age: 11 Day
  Sex: Male

DRUGS (4)
  1. INDOCIN [Suspect]
     Indication: PATENT DUCTUS ARTERIOSUS
     Dosage: 0.095 MG; 1X; IV
     Route: 042
     Dates: start: 20090622, end: 20090623
  2. NILSTAT [Concomitant]
  3. PENICILLIN [Concomitant]
  4. GENTAMICIN [Concomitant]

REACTIONS (2)
  - ILEAL PERFORATION [None]
  - MYOCARDIAL INFARCTION [None]
